FAERS Safety Report 8444831-X (Version None)
Quarter: 2012Q2

REPORT INFORMATION
  Report Type: 
  Country: None (occurrence: None)
  Receive Date: 20120618
  Receipt Date: 20120611
  Transmission Date: 20120825
  Serious: Yes (Other)
  Sender: FDA-Public Use
  Company Number: PHHY2012DE050985

PATIENT
  Sex: Male

DRUGS (4)
  1. CLOZAPINE [Suspect]
     Dosage: 175 MG DAY
     Route: 048
  2. INVEGA [Concomitant]
     Dosage: 1 DF, QD
  3. CLOZAPINE [Suspect]
     Indication: PSYCHOTIC DISORDER
     Dosage: 125 MG /DAY
     Route: 048
  4. DIAZEPAM [Concomitant]
     Dosage: 5 MG

REACTIONS (5)
  - METABOLIC SYNDROME [None]
  - DIABETES MELLITUS [None]
  - POLYDIPSIA [None]
  - SOMNOLENCE [None]
  - CARDIOVASCULAR INSUFFICIENCY [None]
